FAERS Safety Report 5489971-2 (Version None)
Quarter: 2007Q4

REPORT INFORMATION
  Report Type: 
  Country: None (occurrence: None)
  Receive Date: 20071015
  Receipt Date: 20070621
  Transmission Date: 20080405
  Serious: No
  Sender: FDA-Public Use
  Company Number: 2007SP002319

PATIENT
  Age: 54 Year
  Sex: Female
  Weight: 52.6173 kg

DRUGS (2)
  1. LUNESTA [Suspect]
     Indication: INSOMNIA
     Dosage: 2 MG;ORAL; HS;ORAL
     Route: 048
     Dates: start: 20060101, end: 20060101
  2. LUNESTA [Suspect]
     Indication: INSOMNIA
     Dosage: 2 MG;ORAL; HS;ORAL
     Route: 048
     Dates: start: 20060101, end: 20060301

REACTIONS (3)
  - HYPERMETABOLISM [None]
  - NAUSEA [None]
  - WEIGHT DECREASED [None]
